FAERS Safety Report 5012135-3 (Version None)
Quarter: 2006Q2

REPORT INFORMATION
  Report Type: 
  Country: None (occurrence: None)
  Receive Date: 20060524
  Receipt Date: 20060520
  Transmission Date: 20061013
  Serious: Yes (Other)
  Sender: FDA-Public Use
  Company Number: 221447

PATIENT
  Age: 44 Year
  Sex: Female

DRUGS (2)
  1. AVASTIN [Suspect]
     Indication: BREAST CANCER METASTATIC
     Dosage: Q2W
     Dates: start: 20051001
  2. ABRAXANE (PACLITAXEL) [Concomitant]

REACTIONS (4)
  - DIPLOPIA [None]
  - EPISTAXIS [None]
  - HYPERTENSION [None]
  - VITH NERVE PARALYSIS [None]
